FAERS Safety Report 7747339-X (Version None)
Quarter: 2011Q3

REPORT INFORMATION
  Report Type: 
  Country: None (occurrence: None)
  Receive Date: 20110913
  Receipt Date: 20110909
  Transmission Date: 20111222
  Serious: Yes (Congenital Anomaly, Other)
  Sender: FDA-Public Use
  Company Number: US-PFIZER INC-2011077307

PATIENT

DRUGS (13)
  1. REVIA [Concomitant]
     Dosage: 25 MG, 2X/DAY
     Route: 064
     Dates: start: 20011030, end: 20020108
  2. ZOLOFT [Suspect]
     Dosage: 200 MG, 1X/DAY
     Route: 064
  3. ALBUTEROL [Concomitant]
     Dosage: UNIT DOSE HAND HELD NEBULIZER EVERY 4 HOURS WHILE AWAKE
     Route: 064
  4. HYDROCODONE [Concomitant]
     Indication: ARTHRITIS
     Dosage: 5/500 TWICE A DAY FOR ONE MONTH
     Route: 064
  5. ZOLOFT [Suspect]
     Dosage: 50 MG, UNK
     Route: 064
  6. ATROVENT [Concomitant]
     Dosage: UNIT DOSE HAND HELD NEBULIZER EVERY 4 HOURS
     Route: 064
  7. CEFTIN [Concomitant]
     Dosage: 250 MG, 2X/DAY WITH FOOD
     Route: 064
  8. PRENATAL VITAMINS [Concomitant]
     Dosage: ONCE A DAY
     Route: 064
  9. BENADRYL [Concomitant]
     Dosage: 25 MG, EVERY 4 HRS
     Route: 064
  10. NICODERM [Concomitant]
     Dosage: 21 MG PER HOUR PATCH, ONE PATCH ONE DAY
     Route: 064
  11. SEROQUEL [Concomitant]
     Dosage: 100 MG, 1X/DAY, AT BED TIME
     Route: 064
  12. ZOLOFT [Suspect]
     Dosage: 100 MG ONCE AT BED TIME
     Route: 064
  13. SOLU-MEDROL [Concomitant]
     Dosage: 125 MG, EVERY 6 HOURS, EVERY 8 HOURS
     Route: 064

REACTIONS (2)
  - CONGENITAL ANOMALY [None]
  - MATERNAL EXPOSURE DURING PREGNANCY [None]
